FAERS Safety Report 9237221 (Version 1)
Quarter: 2013Q2

REPORT INFORMATION
  Report Type: Other
  Country: GB (occurrence: GB)
  Receive Date: 20130417
  Receipt Date: 20130417
  Transmission Date: 20140414
  Serious: Yes (Other)
  Sender: FDA-Public Use
  Company Number: GB-WATSON-2013-06278

PATIENT
  Age: 43 Year
  Sex: Female

DRUGS (2)
  1. SERTRALINE HYDROCHLORIDE (UNKNOWN) [Suspect]
     Indication: DEPRESSION
     Dosage: 100 MG, BID
     Route: 048
  2. SERTRALINE HYDROCHLORIDE (UNKNOWN) [Suspect]
     Indication: ANXIETY
     Dosage: UNK
     Route: 065

REACTIONS (3)
  - Depression [Recovering/Resolving]
  - Drug resistance [Unknown]
  - Disease recurrence [Recovering/Resolving]
